FAERS Safety Report 21103919 (Version 2)
Quarter: 2022Q3

REPORT INFORMATION
  Report Type: Spontaneous
  Country: FR (occurrence: FR)
  Receive Date: 20220720
  Receipt Date: 20220809
  Transmission Date: 20221026
  Serious: Yes (Other)
  Sender: FDA-Public Use
  Company Number: FR-AFSSAPS-MP20222385

PATIENT
  Age: 87 Year
  Sex: Male
  Weight: 69 kg

DRUGS (5)
  1. SOTALOL [Suspect]
     Active Substance: SOTALOL
     Indication: Arrhythmia supraventricular
     Dosage: UNK UNK, ONCE A DAY (THE PATIENT DECLARES HAVING TAKEN ALL OF HIS SOTALOL PACK)
     Route: 048
     Dates: start: 20211228, end: 20211228
  2. SOTALOL [Suspect]
     Active Substance: SOTALOL
     Dosage: 80 MILLIGRAM, TWO TIMES A DAY (BASIC TREATMENT: SOTALOL 80MG 2X/DAY)
     Route: 048
  3. ROSUVASTATIN [Concomitant]
     Active Substance: ROSUVASTATIN
     Indication: Myocardial ischaemia
     Dosage: 10 MILLIGRAM, ONCE A DAY
     Route: 048
  4. KARDEGIC [Concomitant]
     Active Substance: ASPIRIN DL-LYSINE
     Indication: Myocardial ischaemia
     Dosage: 100 MILLIGRAM, ONCE A DAY
     Route: 048
  5. FUROSEMIDE [Concomitant]
     Active Substance: FUROSEMIDE
     Indication: Cardiac failure
     Dosage: 100 MILLIGRAM, ONCE A DAY
     Route: 048

REACTIONS (3)
  - Bradycardia [Recovered/Resolved]
  - Transaminases increased [Recovered/Resolved]
  - Poisoning deliberate [Recovered/Resolved]

NARRATIVE: CASE EVENT DATE: 20211228
